FAERS Safety Report 24459269 (Version 1)
Quarter: 2024Q4

REPORT INFORMATION
  Report Type: Spontaneous
  Country: AU (occurrence: AU)
  Receive Date: 20241018
  Receipt Date: 20241018
  Transmission Date: 20250115
  Serious: Yes (Other)
  Sender: TEVA
  Company Number: AU-TEVA-VS-3253024

PATIENT
  Age: 82 Year
  Sex: Female

DRUGS (1)
  1. AJOVY [Suspect]
     Active Substance: FREMANEZUMAB-VFRM
     Indication: Ear pain
     Dosage: DOSAGE: 225 MG/ML
     Route: 065
     Dates: start: 20240814, end: 20240814

REACTIONS (14)
  - Cardiac failure congestive [Unknown]
  - Product use in unapproved indication [Unknown]
  - Dry mouth [Unknown]
  - Pruritus [Unknown]
  - Arthralgia [Unknown]
  - Headache [Unknown]
  - Muscle spasms [Unknown]
  - Chest pain [Unknown]
  - Dyspnoea [Unknown]
  - Asthenia [Unknown]
  - Fatigue [Unknown]
  - Poor quality sleep [Unknown]
  - Dizziness [Unknown]
  - Depression [Unknown]

NARRATIVE: CASE EVENT DATE: 20240101
